FAERS Safety Report 16363715 (Version 5)
Quarter: 2022Q2

REPORT INFORMATION
  Report Type: Spontaneous
  Country: HU (occurrence: HU)
  Receive Date: 20190528
  Receipt Date: 20220419
  Transmission Date: 20220720
  Serious: Yes (Other)
  Sender: FDA-Public Use
  Company Number: HU-NOVPHSZ-PHHY2019HU108988

PATIENT
  Age: 54 Year
  Sex: Female

DRUGS (1)
  1. REMICADE [Suspect]
     Active Substance: INFLIXIMAB
     Indication: Rheumatoid arthritis
     Route: 042

REACTIONS (3)
  - Thrombocytosis [Unknown]
  - Osteoporosis [Unknown]
  - Rheumatoid arthritis [Unknown]
